FAERS Safety Report 8792764 (Version 2)
Quarter: 2014Q1

REPORT INFORMATION
  Report Type: Report from Study
  Country: JP (occurrence: JP)
  Receive Date: 20120918
  Receipt Date: 20140205
  Transmission Date: 20141002
  Serious: Yes (Life-Threatening, Other)
  Sender: FDA-Public Use
  Company Number: JP-VERTEX PHARMACEUTICAL INC.-2012-021227

PATIENT
  Age: 67 Year
  Sex: Male

DRUGS (12)
  1. VX-950 (TELAPREVIR) [Suspect]
     Indication: CHRONIC HEPATITIS C
     Dosage: 2250 MG, QD
     Route: 048
     Dates: start: 20120717
  2. VX-950 (TELAPREVIR) [Suspect]
     Dosage: 1500 MG, QD
     Route: 048
     Dates: start: 20120720, end: 20120819
  3. VX-950 (TELAPREVIR) [Suspect]
     Dosage: 750 MG, QD
     Route: 048
     Dates: start: 20120820, end: 20120826
  4. RIBAVIRIN [Concomitant]
     Dosage: 800 MG, QD
     Route: 048
     Dates: start: 20120717, end: 20120819
  5. RIBAVIRIN [Concomitant]
     Dosage: 400 MG, QD
     Route: 048
     Dates: start: 20120820, end: 20120826
  6. PEGINTERFERON ALFA-2B [Concomitant]
     Dosage: 1.5 UNK, QW
     Route: 058
     Dates: start: 20120717, end: 20120805
  7. PEGINTERFERON ALFA-2B [Concomitant]
     Dosage: 1.39 ?G/KG, QW
     Route: 058
     Dates: start: 20120806, end: 20120812
  8. PEGINTERFERON ALFA-2B [Concomitant]
     Dosage: 0.7 ?G/KG, QW
     Route: 058
     Dates: start: 20120813, end: 20120819
  9. PEGINTERFERON ALFA-2B [Concomitant]
     Dosage: 0.8 ?G/KG, QW
     Route: 058
     Dates: start: 20120820, end: 20120826
  10. LORFENAMIN [Concomitant]
     Dosage: 1 DF, PRN
     Route: 048
     Dates: start: 20120719
  11. SALOBEL [Concomitant]
     Dosage: 2 DF, UNK
     Route: 048
     Dates: start: 20120809, end: 20120819
  12. SALOBEL [Concomitant]
     Dosage: 1 UNK, UNK
     Route: 048
     Dates: start: 20120820

REACTIONS (2)
  - Renal impairment [Recovered/Resolved]
  - Rash [Unknown]
